FAERS Safety Report 9109679 (Version 1)
Quarter: 2013Q1

REPORT INFORMATION
  Report Type: Spontaneous
  Country: US (occurrence: US)
  Receive Date: 20130222
  Receipt Date: 20130222
  Transmission Date: 20140127
  Serious: No
  Sender: FDA-Public Use
  Company Number: US-PFIZER INC-2013051002

PATIENT
  Age: 66 Year
  Sex: Female
  Weight: 61.68 kg

DRUGS (2)
  1. CHILDRENS ADVIL [Suspect]
     Dosage: UNK
     Route: 048
     Dates: start: 20130205
  2. LEVOXYL [Concomitant]
     Indication: THYROID DISORDER
     Dosage: 5 MG, DAILY

REACTIONS (1)
  - No adverse event [Unknown]
